FAERS Safety Report 8316574-4 (Version None)
Quarter: 2012Q2

REPORT INFORMATION
  Report Type: 
  Country: None (occurrence: None)
  Receive Date: 20120427
  Receipt Date: 20120424
  Transmission Date: 20120825
  Serious: Yes (Death, Other)
  Sender: FDA-Public Use
  Company Number: PHHY2012JP023042

PATIENT

DRUGS (6)
  1. AREDIA [Suspect]
     Indication: METASTASES TO BONE
     Dosage: 90 MG, PER ADMINISTRATION
     Route: 041
     Dates: start: 20051114, end: 20060719
  2. CHLOR-TRIMETON [Concomitant]
     Indication: CHEMOTHERAPY
     Dosage: UNK
     Route: 041
     Dates: start: 20090717
  3. BETAMETHASONE [Concomitant]
     Indication: CHEMOTHERAPY
     Dosage: UNK
     Route: 041
     Dates: start: 20090717
  4. PACLITAXEL [Concomitant]
     Indication: CHEMOTHERAPY
     Dates: start: 20090617
  5. ZOMETA [Suspect]
     Indication: METASTASES TO BONE
     Dosage: 4 MG, PER ADMINISTRATION
     Route: 041
     Dates: start: 20060719, end: 20100924
  6. ZANTAC [Concomitant]
     Dosage: UNK
     Route: 041
     Dates: start: 20090717

REACTIONS (8)
  - TOOTHACHE [None]
  - OSTEONECROSIS OF JAW [None]
  - NEOPLASM PROGRESSION [None]
  - NEOPLASM MALIGNANT [None]
  - PERIODONTITIS [None]
  - TOOTH LOSS [None]
  - EXPOSED BONE IN JAW [None]
  - PAIN IN JAW [None]
